FAERS Safety Report 8138558-1 (Version None)
Quarter: 2012Q1

REPORT INFORMATION
  Report Type: 
  Country: None (occurrence: None)
  Receive Date: 20120213
  Receipt Date: 20120207
  Transmission Date: 20120608
  Serious: Yes (Other)
  Sender: FDA-Public Use
  Company Number: GER/GER/12/0022950

PATIENT
  Sex: Female
  Weight: 3.82 kg

DRUGS (4)
  1. SERTRALINE HYDROCHLORIDE [Suspect]
     Indication: PRODUCT USED FOR UNKNOWN INDICATION
     Dosage: 150 MG, D, TRANSPLACENTAL
     Route: 064
  2. PROTAPHANE (INSULIN HUMAN INJECTION, ISOPHANE) [Concomitant]
  3. RISPERDAL [Suspect]
     Indication: PRODUCT USED FOR UNKNOWN INDICATION
     Dosage: 1 MG, D, TRANSPLACENTAL
     Route: 064
     Dates: start: 20101207, end: 20110901
  4. ACTRAPID (INSULIN HUMAN) [Concomitant]

REACTIONS (8)
  - MATERNAL DRUGS AFFECTING FOETUS [None]
  - NEONATAL RESPIRATORY DISTRESS SYNDROME [None]
  - CLONUS [None]
  - HYPERTONIA NEONATAL [None]
  - FOETAL MACROSOMIA [None]
  - BLOOD GLUCOSE DECREASED [None]
  - CEREBRAL CALCIFICATION [None]
  - CAESAREAN SECTION [None]
